FAERS Safety Report 25995289 (Version 1)
Quarter: 2025Q4

REPORT INFORMATION
  Report Type: Report from Study
  Country: US (occurrence: US)
  Receive Date: 20251104
  Receipt Date: 20251104
  Transmission Date: 20260118
  Serious: Yes (Other)
  Sender: ALEXION PHARMACEUTICALS
  Company Number: US-AstraZeneca-CH-00981167A

PATIENT
  Age: 61 Year
  Sex: Male

DRUGS (3)
  1. ACALABRUTINIB [Suspect]
     Active Substance: ACALABRUTINIB
     Indication: Chronic lymphocytic leukaemia
     Dosage: 100 MILLIGRAM, Q12H
     Dates: start: 20250721
  2. OXYCODONE [Concomitant]
     Active Substance: OXYCODONE
     Route: 065
  3. OXYGEN [Concomitant]
     Active Substance: OXYGEN
     Route: 065

REACTIONS (5)
  - Oesophageal disorder [Unknown]
  - Paraesthesia [Unknown]
  - Back pain [Unknown]
  - Fall [Unknown]
  - Hypoaesthesia [Unknown]
